FAERS Safety Report 4989959-1 (Version None)
Quarter: 2006Q2

REPORT INFORMATION
  Report Type: 
  Country: None (occurrence: None)
  Receive Date: 20060428
  Receipt Date: 20060417
  Transmission Date: 20061013
  Serious: Yes (Hospitalization)
  Sender: FDA-Public Use
  Company Number: JP200604003079

PATIENT
  Age: 86 Year
  Sex: 0

DRUGS (1)
  1. ZYPREXA [Suspect]
     Indication: SCHIZOPHRENIA
     Dosage: 1.5 MG, ORAL
     Route: 048

REACTIONS (4)
  - ADRENAL INSUFFICIENCY [None]
  - HYPOGLYCAEMIA [None]
  - PERITONITIS [None]
  - PITUITARY TUMOUR BENIGN [None]
